FAERS Safety Report 12335508 (Version 2)
Quarter: 2016Q3

REPORT INFORMATION
  Report Type: Spontaneous
  Country: US (occurrence: US)
  Receive Date: 20160504
  Receipt Date: 20160819
  Transmission Date: 20161109
  Serious: No
  Sender: FDA-Public Use
  Company Number: US-JNJFOC-20160422292

PATIENT
  Age: 76 Year
  Sex: Male
  Weight: 83.92 kg

DRUGS (1)
  1. ZYTIGA [Suspect]
     Active Substance: ABIRATERONE ACETATE
     Indication: PROSTATE CANCER METASTATIC
     Route: 048
     Dates: start: 201603

REACTIONS (6)
  - Product size issue [Not Recovered/Not Resolved]
  - Product coating issue [Unknown]
  - Off label use [Unknown]
  - Product difficult to swallow [Not Recovered/Not Resolved]
  - Wrong technique in product usage process [Unknown]
  - Drug dose omission [Unknown]

NARRATIVE: CASE EVENT DATE: 201604
